FAERS Safety Report 7635313-3 (Version None)
Quarter: 2011Q3

REPORT INFORMATION
  Report Type: 
  Country: None (occurrence: None)
  Receive Date: 20110718
  Receipt Date: 20110708
  Transmission Date: 20111222
  Serious: Yes (Death, Other)
  Sender: FDA-Public Use
  Company Number: LEO-2011-00133

PATIENT
  Age: 66 Year
  Sex: Male
  Weight: 70 kg

DRUGS (4)
  1. INNOHEP [Suspect]
     Indication: VENA CAVA THROMBOSIS
     Dosage: 10000 IU (10000 IU, 1 IN 1 D), SUBCUTANEOUS
     Route: 058
     Dates: start: 20101119
  2. PLAVIX [Concomitant]
  3. NEXIUM [Concomitant]
  4. SIMVASTATIN [Concomitant]

REACTIONS (9)
  - GOITRE [None]
  - METASTASES TO PERITONEUM [None]
  - ASCITES [None]
  - BLOOD CREATININE INCREASED [None]
  - PLEURAL EFFUSION [None]
  - INCORRECT DRUG ADMINISTRATION DURATION [None]
  - DRUG INEFFECTIVE [None]
  - VENA CAVA THROMBOSIS [None]
  - INCORRECT STORAGE OF DRUG [None]
